FAERS Safety Report 6233044-8 (Version None)
Quarter: 2009Q2

REPORT INFORMATION
  Report Type: 
  Country: None (occurrence: None)
  Receive Date: 20090617
  Receipt Date: 20090602
  Transmission Date: 20091009
  Serious: Yes (Hospitalization)
  Sender: FDA-Public Use
  Company Number: US-ALEXION-A200900444

PATIENT
  Sex: Female
  Weight: 72.562 kg

DRUGS (6)
  1. SOLIRIS [Suspect]
     Indication: PAROXYSMAL NOCTURNAL HAEMOGLOBINURIA
     Dosage: UNK
     Route: 042
     Dates: start: 20070101
  2. SOLIRIS [Suspect]
     Dosage: 900 MG, Q2W
     Route: 042
  3. VITAMIN B12                        /00056201/ [Concomitant]
     Dosage: Q MONTH
  4. COUMADIN [Concomitant]
     Dosage: 2 MG, QD
     Route: 048
  5. KLONOPIN [Concomitant]
  6. FENTANYL [Concomitant]
     Indication: PAIN
     Dosage: 75 UG, HOUR, Q72H
     Route: 061

REACTIONS (10)
  - ANAEMIA [None]
  - ANOREXIA [None]
  - ASTHENIA [None]
  - BLOOD POTASSIUM DECREASED [None]
  - BRONCHOPULMONARY DISEASE [None]
  - DYSPNOEA [None]
  - FATIGUE [None]
  - MALAISE [None]
  - THIRST [None]
  - VOMITING [None]
